FAERS Safety Report 4599698-7 (Version None)
Quarter: 2005Q1

REPORT INFORMATION
  Report Type: 
  Country: None (occurrence: None)
  Receive Date: 20050303
  Receipt Date: 20050210
  Transmission Date: 20050727
  Serious: Yes (Hospitalization)
  Sender: FDA-Public Use
  Company Number: USA050290739

PATIENT
  Age: 65 Year
  Sex: Female

DRUGS (2)
  1. PROZAC [Suspect]
  2. ZYPREXA [Suspect]
     Dosage: 5 MG DAY

REACTIONS (1)
  - BLOOD GLUCOSE INCREASED [None]
